FAERS Safety Report 25858234 (Version 1)
Quarter: 2025Q3

REPORT INFORMATION
  Report Type: Spontaneous
  Country: US (occurrence: US)
  Receive Date: 20250929
  Receipt Date: 20250929
  Transmission Date: 20251020
  Serious: No
  Sender: Kenvue
  Company Number: US-KENVUE-20250808113

PATIENT
  Age: 37 Year
  Sex: Male

DRUGS (1)
  1. MENS ROGAINE EXTRA STRENGTH [Suspect]
     Active Substance: MINOXIDIL
     Indication: Alopecia
     Dosage: HALF A CAPFUL, TWICE A DAY (APPLIED IT ON FRIDAY, THEN SATURDAY MORNING)
     Route: 061
     Dates: start: 20250815, end: 20250816

REACTIONS (3)
  - Application site vesicles [Recovering/Resolving]
  - Application site ulcer [Recovering/Resolving]
  - Product use in unapproved indication [Unknown]

NARRATIVE: CASE EVENT DATE: 20250815
